FAERS Safety Report 6667260-8 (Version None)
Quarter: 2010Q2

REPORT INFORMATION
  Report Type: 
  Country: None (occurrence: None)
  Receive Date: 20100405
  Receipt Date: 20100329
  Transmission Date: 20101027
  Serious: Yes (Other)
  Sender: FDA-Public Use
  Company Number: US-CELGENEUS-163-20785-10032689

PATIENT
  Sex: Male

DRUGS (2)
  1. THALOMID [Suspect]
     Route: 048
     Dates: start: 20100301, end: 20100301
  2. THALOMID [Suspect]
     Route: 048
     Dates: start: 20100201, end: 20100201

REACTIONS (2)
  - DISEASE PROGRESSION [None]
  - SPINAL CORD COMPRESSION [None]
